FAERS Safety Report 10148937 (Version 2)
Quarter: 2014Q2

REPORT INFORMATION
  Report Type: Spontaneous
  Country: US (occurrence: US)
  Receive Date: 20140502
  Receipt Date: 20140522
  Transmission Date: 20141212
  Serious: Yes (Hospitalization)
  Sender: FDA-Public Use
  Company Number: US-BIOGENIDEC-2014BI041320

PATIENT
  Age: 85 Year
  Sex: Female

DRUGS (2)
  1. AVONEX [Suspect]
     Indication: MULTIPLE SCLEROSIS
     Route: 030
     Dates: start: 20130129
  2. LEVOTHYROXINE SODIUM [Concomitant]

REACTIONS (3)
  - Hip fracture [Unknown]
  - Fall [Recovered/Resolved]
  - Muscular weakness [Recovered/Resolved]
